FAERS Safety Report 8511028-4 (Version None)
Quarter: 2012Q3

REPORT INFORMATION
  Report Type: 
  Country: None (occurrence: None)
  Receive Date: 20120716
  Receipt Date: 20120706
  Transmission Date: 20120928
  Serious: Yes (Other)
  Sender: FDA-Public Use
  Company Number: US-JNJFOC-20120703654

PATIENT
  Age: 43 Year
  Sex: Male

DRUGS (1)
  1. REMICADE [Suspect]
     Indication: COLITIS ULCERATIVE
     Route: 042
     Dates: start: 20110101

REACTIONS (6)
  - MUSCULOSKELETAL PAIN [None]
  - VERTIGO [None]
  - ABDOMINAL PAIN [None]
  - CONTUSION [None]
  - PAIN IN EXTREMITY [None]
  - SCIATICA [None]
